FAERS Safety Report 9136896 (Version 1)
Quarter: 2013Q1

REPORT INFORMATION
  Report Type: Spontaneous
  Country: US (occurrence: US)
  Receive Date: 20130304
  Receipt Date: 20130304
  Transmission Date: 20140127
  Serious: No
  Sender: FDA-Public Use
  Company Number: US-ABBOTT-13P-163-1045934-00

PATIENT
  Age: 52 Year
  Sex: Female

DRUGS (1)
  1. ANDROGEL 1% [Suspect]
     Indication: EXPOSURE VIA DIRECT CONTACT
     Route: 062

REACTIONS (3)
  - Hair growth abnormal [Not Recovered/Not Resolved]
  - Acne [Not Recovered/Not Resolved]
  - Libido decreased [Not Recovered/Not Resolved]
